FAERS Safety Report 6454610-0 (Version None)
Quarter: 2009Q4

REPORT INFORMATION
  Report Type: 
  Country: None (occurrence: None)
  Receive Date: 20091118
  Receipt Date: 20091109
  Transmission Date: 20100525
  Serious: Yes (Other)
  Sender: FDA-Public Use
  Company Number: 430654

PATIENT
  Age: 67 Year
  Sex: Female

DRUGS (5)
  1. (PAMIDRONIC ACID) [Suspect]
     Indication: BREAST CANCER METASTATIC
     Dosage: 90 MG DELIVERED OVER 2 H EVERY 4 WEEKS
     Route: 041
     Dates: start: 20050101, end: 20060901
  2. (THERAPEUTIC RADIOPHARMACEUTICALS) [Concomitant]
  3. ESOMEPRAZOLE [Concomitant]
  4. VALSARTAN [Concomitant]
  5. EXEMESTANE [Concomitant]

REACTIONS (2)
  - FOCAL SEGMENTAL GLOMERULOSCLEROSIS [None]
  - KIDNEY FIBROSIS [None]
